FAERS Safety Report 10727880 (Version 8)
Quarter: 2015Q3

REPORT INFORMATION
  Report Type: Report from Study
  Country: ES (occurrence: ES)
  Receive Date: 20150121
  Receipt Date: 20150724
  Transmission Date: 20151125
  Serious: Yes (Death, Hospitalization)
  Sender: FDA-Public Use
  Company Number: ES-MERCK-1411ESP011590

PATIENT
  Age: 60 Year
  Sex: Male

DRUGS (8)
  1. PEMBROLIZUMAB. [Suspect]
     Active Substance: PEMBROLIZUMAB
     Dosage: 2 MG/KG, Q3W
     Route: 042
     Dates: start: 20141030, end: 20141030
  2. PANTECTA [Concomitant]
     Active Substance: PANTOPRAZOLE SODIUM
     Indication: PROPHYLAXIS AGAINST GASTROINTESTINAL ULCER
     Dosage: 40 MG, QD
     Route: 048
     Dates: start: 20140304
  3. BUDESONIDE. [Concomitant]
     Active Substance: BUDESONIDE
     Indication: DYSPNOEA
     Dosage: 200 MICROGRAM, BID, FORMULATION: INHALANT
     Route: 055
     Dates: start: 20140404
  4. PEMBROLIZUMAB. [Suspect]
     Active Substance: PEMBROLIZUMAB
     Indication: NON-SMALL CELL LUNG CANCER
     Dosage: 2 MG/KG, Q3W
     Route: 042
     Dates: start: 20141010, end: 20141010
  5. SPIRIVA [Concomitant]
     Active Substance: TIOTROPIUM BROMIDE MONOHYDRATE
     Indication: DYSPNOEA
     Dosage: 18 MICROGRAM, QD, FORMULATION: INHALANT
     Route: 055
     Dates: start: 20140304, end: 20141211
  6. HIBOR [Concomitant]
     Active Substance: BEMIPARIN SODIUM
     Indication: DEEP VEIN THROMBOSIS
     Dosage: 7500 IU, QD
     Route: 058
     Dates: start: 20140924, end: 20141120
  7. ACETAMINOPHEN. [Concomitant]
     Active Substance: ACETAMINOPHEN
     Indication: PAIN
     Dosage: TOTAL DAILY DOSE: 1 GRAM, PRN
     Route: 048
     Dates: start: 20140304
  8. REXER [Concomitant]
     Active Substance: MIRTAZAPINE
     Indication: DEPRESSION
     Dosage: 15 MG, QD
     Route: 048
     Dates: start: 20140304

REACTIONS (1)
  - Pneumonitis [Fatal]

NARRATIVE: CASE EVENT DATE: 20141117
